FAERS Safety Report 9551759 (Version 1)
Quarter: 2013Q3

REPORT INFORMATION
  Report Type: Spontaneous
  Country: US (occurrence: None)
  Receive Date: 20130724
  Receipt Date: 20130724
  Transmission Date: 20140515
  Serious: Yes (Disabling, Other)
  Sender: FDA-Public Use
  Company Number: PHEH2012US017172

PATIENT
  Age: 57 Year
  Sex: Male
  Weight: 78 kg

DRUGS (2)
  1. GLEEVEC (IMATINIB) UNKNOWN [Suspect]
     Indication: GASTROINTESTINAL STROMAL TUMOUR
     Route: 048
     Dates: start: 200808, end: 201207
  2. PROTONIX (PANTOPRAZOLE) [Concomitant]

REACTIONS (4)
  - Hepatitis acute [None]
  - Fatigue [None]
  - Aspartate aminotransferase increased [None]
  - Blood bilirubin increased [None]
